FAERS Safety Report 16938758 (Version 1)
Quarter: 2019Q4

REPORT INFORMATION
  Report Type: Report from Study
  Country: US (occurrence: US)
  Receive Date: 20191020
  Receipt Date: 20191020
  Transmission Date: 20200122
  Serious: Yes (Hospitalization, Other)
  Sender: FDA-Public Use
  Company Number: PHHY2015US088278

PATIENT
  Age: 49 Year
  Sex: Female
  Weight: 115.4 kg

DRUGS (17)
  1. COPAXONE [Suspect]
     Active Substance: GLATIRAMER ACETATE
     Indication: MULTIPLE SCLEROSIS
     Dosage: 40 MG, TIW (3 TIMES PER WEEK)
     Route: 058
     Dates: start: 20150423
  2. EPIPEN [Concomitant]
     Active Substance: EPINEPHRINE
     Indication: ANAPHYLACTIC REACTION
     Dosage: 0.3 MG, PRN
     Route: 030
  3. MULTI VITAMIN [Concomitant]
     Active Substance: VITAMINS
     Indication: PRODUCT USED FOR UNKNOWN INDICATION
     Dosage: 1 DF, QD
     Route: 048
  4. NEXIUM I.V. [Concomitant]
     Active Substance: ESOMEPRAZOLE SODIUM
     Indication: PRODUCT USED FOR UNKNOWN INDICATION
     Dosage: 20 MG, QD
     Route: 048
  5. NIFEDIPINE. [Concomitant]
     Active Substance: NIFEDIPINE
     Indication: PRODUCT USED FOR UNKNOWN INDICATION
     Dosage: 20 MG, Q6H (4 TIMES A DAY- 2 IN AM, 1 IN NOON, 1 IN PM)
     Route: 048
  6. NO TREATMENT RECEIVED [Suspect]
     Active Substance: UNSPECIFIED INGREDIENT
     Indication: MULTIPLE SCLEROSIS
     Route: 065
  7. LYRICA [Concomitant]
     Active Substance: PREGABALIN
     Indication: PAIN
     Dosage: 300 MG, BID
     Route: 048
  8. DEQUA//LIDOCAINE [Concomitant]
     Indication: PRODUCT USED FOR UNKNOWN INDICATION
     Route: 065
  9. PERCOCET [Concomitant]
     Active Substance: ACETAMINOPHEN\OXYCODONE HYDROCHLORIDE
     Indication: PAIN
     Dosage: 1 DF, Q4H AS NEEDED
     Route: 048
  10. TRAMADOL. [Concomitant]
     Active Substance: TRAMADOL
     Indication: PAIN
     Dosage: 50 MG, Q6H AS NEEDED
     Route: 048
  11. VITAMIN D [Concomitant]
     Active Substance: VITAMIN D NOS
     Indication: PRODUCT USED FOR UNKNOWN INDICATION
     Dosage: 50000 U, QW
     Route: 065
  12. CARISOPRODOL. [Concomitant]
     Active Substance: CARISOPRODOL
     Indication: PRODUCT USED FOR UNKNOWN INDICATION
     Dosage: 30 MG, Q6H
     Route: 048
  13. VITAMIN B12 [Concomitant]
     Active Substance: CYANOCOBALAMIN
     Indication: PRODUCT USED FOR UNKNOWN INDICATION
     Dosage: 100 UG, QD
     Route: 065
  14. BUPROPION. [Concomitant]
     Active Substance: BUPROPION
     Indication: PRODUCT USED FOR UNKNOWN INDICATION
     Dosage: 150 MG, QD
     Route: 048
  15. DESVENLAFAXINE. [Concomitant]
     Active Substance: DESVENLAFAXINE
     Indication: PRODUCT USED FOR UNKNOWN INDICATION
     Dosage: 100 MG, QD
     Route: 048
  16. IMDUR [Concomitant]
     Active Substance: ISOSORBIDE MONONITRATE
     Indication: PRODUCT USED FOR UNKNOWN INDICATION
     Dosage: 30 MG, QD (MORNING)
     Route: 048
  17. VITAMIN D3 [Concomitant]
     Active Substance: CHOLECALCIFEROL
     Indication: PRODUCT USED FOR UNKNOWN INDICATION
     Dosage: 400 IU, QD
     Route: 065

REACTIONS (31)
  - Pulmonary embolism [Recovering/Resolving]
  - Exercise tolerance decreased [Unknown]
  - Head discomfort [Unknown]
  - Tenderness [Unknown]
  - International normalised ratio increased [Unknown]
  - Red blood cell count decreased [Unknown]
  - Multiple sclerosis relapse [Unknown]
  - Costochondritis [Unknown]
  - Gastrointestinal sounds abnormal [Unknown]
  - Deep vein thrombosis [Recovering/Resolving]
  - Fibrin D dimer increased [Unknown]
  - White blood cell count decreased [Unknown]
  - Haemoglobin decreased [Unknown]
  - Prothrombin time prolonged [Unknown]
  - Blood potassium decreased [Unknown]
  - Hemiparesis [Unknown]
  - Hypokinesia [Unknown]
  - Pleural effusion [Unknown]
  - Pleuritic pain [Unknown]
  - Non-cardiac chest pain [Unknown]
  - Atelectasis [Unknown]
  - Dyspnoea [Unknown]
  - Haematocrit decreased [Unknown]
  - Optic neuritis [Unknown]
  - Visual impairment [Unknown]
  - Chest pain [Unknown]
  - Urinary incontinence [Unknown]
  - Haemorrhoids [Unknown]
  - Blood creatinine decreased [Unknown]
  - Splenic cyst [Unknown]
  - Musculoskeletal pain [Unknown]

NARRATIVE: CASE EVENT DATE: 20150616
